FAERS Safety Report 14160357 (Version 1)
Quarter: 2017Q4

REPORT INFORMATION
  Report Type: Report from Study
  Country: None (occurrence: CO)
  Receive Date: 20171104
  Receipt Date: 20171104
  Transmission Date: 20180321
  Serious: Yes (Other)
  Sender: FDA-Public Use
  Company Number: CO-ABBVIE-17K-036-2152569-00

PATIENT
  Age: 73 Year
  Sex: Male
  Weight: 50 kg

DRUGS (1)
  1. HUMIRA [Suspect]
     Active Substance: ADALIMUMAB
     Indication: PSORIASIS
     Route: 058
     Dates: start: 20130425, end: 20171017

REACTIONS (2)
  - Interstitial lung disease [Not Recovered/Not Resolved]
  - Aortic elongation [Not Recovered/Not Resolved]

NARRATIVE: CASE EVENT DATE: 20170922
